FAERS Safety Report 16465994 (Version 4)
Quarter: 2021Q3

REPORT INFORMATION
  Report Type: Other
  Country: US (occurrence: US)
  Receive Date: 20190621
  Receipt Date: 20210819
  Transmission Date: 20211014
  Serious: Yes (Death, Other)
  Sender: FDA-Public Use
  Company Number: US-ACORDA-ACO_158284_2019

PATIENT
  Age: 73 Year
  Sex: Male

DRUGS (2)
  1. INBRIJA [Suspect]
     Active Substance: LEVODOPA
     Indication: PARKINSON^S DISEASE
     Dosage: 2 CAPSULES,UP TO 5X/QD PRN
     Dates: start: 20190703, end: 20190724
  2. INBRIJA [Suspect]
     Active Substance: LEVODOPA
     Indication: ON AND OFF PHENOMENON

REACTIONS (9)
  - Drug ineffective [Unknown]
  - Choking [Recovered/Resolved]
  - Illness [Unknown]
  - Product residue present [Recovered/Resolved]
  - Device delivery system issue [Unknown]
  - Death [Fatal]
  - Device colour issue [Unknown]
  - Device difficult to use [Unknown]
  - Cough [Recovered/Resolved]

NARRATIVE: CASE EVENT DATE: 20210325
